FAERS Safety Report 8448291-4 (Version None)
Quarter: 2012Q2

REPORT INFORMATION
  Report Type: 
  Country: None (occurrence: None)
  Receive Date: 20120619
  Receipt Date: 20120613
  Transmission Date: 20120825
  Serious: Yes (Other)
  Sender: FDA-Public Use
  Company Number: US-TEVA-343253USA

PATIENT
  Sex: Female

DRUGS (2)
  1. ORAL CONTRACEPTIVE NOS [Concomitant]
  2. CLARAVIS [Suspect]
     Dosage: 40 MILLIGRAM;
     Route: 048
     Dates: start: 20120321, end: 20120613

REACTIONS (1)
  - UNINTENDED PREGNANCY [None]
